FAERS Safety Report 11704870 (Version 1)
Quarter: 2015Q4

REPORT INFORMATION
  Report Type: Spontaneous
  Country: US (occurrence: US)
  Receive Date: 20151106
  Receipt Date: 20151106
  Transmission Date: 20160304
  Serious: Yes (Hospitalization)
  Sender: FDA-Public Use
  Company Number: US-PURDUE PHARMA-USA-2015-0127184

PATIENT
  Age: 73 Year
  Sex: Female
  Weight: 62.13 kg

DRUGS (4)
  1. HYDROMORPHONE HCL (SIMILAR TO 19-892) [Suspect]
     Active Substance: HYDROMORPHONE HYDROCHLORIDE
     Indication: ABDOMINAL PAIN
     Dosage: 4 MG, UNK
     Route: 048
     Dates: start: 20141217
  2. FENTANYL. [Suspect]
     Active Substance: FENTANYL
     Indication: ABDOMINAL PAIN
     Dosage: 150 MG, Q72H
     Route: 062
     Dates: start: 20150615
  3. FENTANYL. [Suspect]
     Active Substance: FENTANYL
     Dosage: 175 MG, Q72H
     Route: 062
     Dates: start: 20150811
  4. MILK OF MAGNESIA [Concomitant]
     Active Substance: MAGNESIUM HYDROXIDE

REACTIONS (4)
  - Haemorrhoids [None]
  - Atelectasis [Unknown]
  - Constipation [Recovered/Resolved]
  - Abdominal pain [Recovered/Resolved]

NARRATIVE: CASE EVENT DATE: 20150801
